FAERS Safety Report 20315896 (Version 1)
Quarter: 2022Q1

REPORT INFORMATION
  Report Type: Other
  Country: US (occurrence: None)
  Receive Date: 20220110
  Receipt Date: 20220110
  Transmission Date: 20220424
  Serious: No
  Sender: FDA-Public Use
  Company Number: US-ROCHE-2879272

PATIENT
  Age: 22 Year
  Sex: Female

DRUGS (22)
  1. RITUXIMAB [Suspect]
     Active Substance: RITUXIMAB
     Indication: Immunomodulatory therapy
     Route: 065
  2. METHYLPREDNISOLONE [Suspect]
     Active Substance: METHYLPREDNISOLONE
     Indication: Immunomodulatory therapy
     Route: 065
  3. PREDNISONE [Suspect]
     Active Substance: PREDNISONE
     Indication: Immunomodulatory therapy
     Route: 065
  4. DEXAMETHASONE [Suspect]
     Active Substance: DEXAMETHASONE
     Indication: Immunomodulatory therapy
     Route: 065
  5. LEVETIRACETAM [Concomitant]
     Active Substance: LEVETIRACETAM
  6. LORAZEPAM [Concomitant]
     Active Substance: LORAZEPAM
  7. PROPOFOL [Concomitant]
     Active Substance: PROPOFOL
  8. LACOSAMIDE [Concomitant]
     Active Substance: LACOSAMIDE
  9. LEVETIRACETAM [Concomitant]
     Active Substance: LEVETIRACETAM
  10. LORAZEPAM [Concomitant]
     Active Substance: LORAZEPAM
  11. PHENYTOIN [Concomitant]
     Active Substance: PHENYTOIN
  12. VALPROATE [Concomitant]
     Active Substance: VALPROIC ACID
  13. PHENOBARBITAL [Concomitant]
     Active Substance: PHENOBARBITAL
  14. CLOBAZAM [Concomitant]
     Active Substance: CLOBAZAM
  15. OXCARBAZEPINE [Concomitant]
     Active Substance: OXCARBAZEPINE
  16. DIAZEPAM [Concomitant]
     Active Substance: DIAZEPAM
  17. BRIVARACETAM [Concomitant]
     Active Substance: BRIVARACETAM
  18. GABAPENTIN [Concomitant]
     Active Substance: GABAPENTIN
  19. METHYLPREDNISOLONE [Concomitant]
     Active Substance: METHYLPREDNISOLONE
  20. MIDAZOLAM [Concomitant]
     Active Substance: MIDAZOLAM
  21. KETAMINE [Concomitant]
     Active Substance: KETAMINE
  22. PYRIDOXINE [Concomitant]
     Active Substance: PYRIDOXINE

REACTIONS (1)
  - Epstein-Barr virus infection [Unknown]
